FAERS Safety Report 15660236 (Version 1)
Quarter: 2018Q4

REPORT INFORMATION
  Report Type: Spontaneous
  Country: BE (occurrence: BE)
  Receive Date: 20181127
  Receipt Date: 20181127
  Transmission Date: 20190205
  Serious: Yes (Other)
  Sender: FDA-Public Use
  Company Number: BE-AMGEN-BELSP2018167779

PATIENT
  Age: 79 Year
  Sex: Female

DRUGS (1)
  1. PROLIA [Suspect]
     Active Substance: DENOSUMAB
     Indication: OSTEOPOROTIC FRACTURE
     Dosage: UNK UNK, Q6MO
     Route: 058

REACTIONS (5)
  - Atypical femur fracture [Recovering/Resolving]
  - Vitamin D decreased [Unknown]
  - C-reactive protein increased [Unknown]
  - Polyneuropathy [Unknown]
  - Implant site pain [Unknown]

NARRATIVE: CASE EVENT DATE: 2013
